FAERS Safety Report 6442350-3 (Version None)
Quarter: 2009Q4

REPORT INFORMATION
  Report Type: 
  Country: None (occurrence: None)
  Receive Date: 20091112
  Receipt Date: 20091006
  Transmission Date: 20100525
  Serious: Yes (Hospitalization, Other)
  Sender: FDA-Public Use
  Company Number: CL-65-2009

PATIENT
  Age: 58 Year
  Sex: Male

DRUGS (2)
  1. CIPROFLOXACIN [Suspect]
     Indication: UPPER RESPIRATORY TRACT INFECTION
     Dosage: 400 MG
  2. METHADONE HCL [Suspect]
     Indication: DRUG DEPENDENCE
     Dosage: 120 MG

REACTIONS (5)
  - DRUG INTERACTION [None]
  - LETHARGY [None]
  - SELF-MEDICATION [None]
  - SINUS BRADYCARDIA [None]
  - TORSADE DE POINTES [None]
